FAERS Safety Report 9293178 (Version 2)
Quarter: 2013Q2

REPORT INFORMATION
  Report Type: Spontaneous
  Country: ES (occurrence: ES)
  Receive Date: 20130516
  Receipt Date: 20130520
  Transmission Date: 20140414
  Serious: Yes (Other)
  Sender: FDA-Public Use
  Company Number: ES-PFIZER INC-2013147169

PATIENT
  Age: 49 Year
  Sex: Male

DRUGS (5)
  1. LYRICA [Suspect]
     Indication: NEURALGIA
     Dosage: 75 MG, 1X/DAY
     Dates: start: 20130328
  2. LYRICA [Suspect]
     Dosage: 1CAPSULE 75MG AT MORNING AND 2CAPSULES 75MG AT NIGHT
  3. TRAMADOL [Concomitant]
  4. VOLTAREN [Concomitant]
  5. ZALDIAR [Concomitant]

REACTIONS (4)
  - Blood cholesterol increased [Not Recovered/Not Resolved]
  - Blood triglycerides increased [Not Recovered/Not Resolved]
  - Dizziness [Not Recovered/Not Resolved]
  - Oedema peripheral [Not Recovered/Not Resolved]
